FAERS Safety Report 15670562 (Version 1)
Quarter: 2018Q4

REPORT INFORMATION
  Report Type: Spontaneous
  Country: US (occurrence: US)
  Receive Date: 20181129
  Receipt Date: 20181129
  Transmission Date: 20190205
  Serious: Yes (Other)
  Sender: FDA-Public Use
  Company Number: US-JNJFOC-20181137371

PATIENT
  Age: 69 Year
  Sex: Male
  Weight: 97.2 kg

DRUGS (1)
  1. INVOKANA [Suspect]
     Active Substance: CANAGLIFLOZIN
     Indication: TYPE 2 DIABETES MELLITUS
     Route: 048
     Dates: start: 20140703

REACTIONS (3)
  - Toe amputation [Unknown]
  - Osteomyelitis [Recovering/Resolving]
  - Dry gangrene [Recovering/Resolving]

NARRATIVE: CASE EVENT DATE: 20170901
